FAERS Safety Report 5806539-6 (Version None)
Quarter: 2008Q3

REPORT INFORMATION
  Report Type: 
  Country: None (occurrence: None)
  Receive Date: 20080710
  Receipt Date: 20080619
  Transmission Date: 20090109
  Serious: No
  Sender: FDA-Public Use
  Company Number: US-BOEHRINGER INGELHEIM GMBH, GERMANY-2008-BP-09557BP

PATIENT
  Age: 55 Year
  Sex: Female

DRUGS (7)
  1. MIRAPEX [Suspect]
     Indication: FIBROMYALGIA
     Route: 048
     Dates: start: 20080301
  2. MIRAPEX [Suspect]
     Route: 048
  3. LORTAB [Concomitant]
     Indication: FIBROMYALGIA
  4. WELLBUTRIN [Concomitant]
     Indication: FIBROMYALGIA
  5. ULTRAM [Concomitant]
     Indication: FIBROMYALGIA
  6. TRANXENE [Concomitant]
     Indication: FIBROMYALGIA
  7. ZANAFLEX [Concomitant]
     Indication: FIBROMYALGIA

REACTIONS (4)
  - FATIGUE [None]
  - FEELING ABNORMAL [None]
  - PAIN [None]
  - PAIN IN EXTREMITY [None]
